FAERS Safety Report 9369018 (Version 2)
Quarter: 2013Q4

REPORT INFORMATION
  Report Type: Spontaneous
  Country: FR (occurrence: FR)
  Receive Date: 20130626
  Receipt Date: 20131108
  Transmission Date: 20140711
  Serious: Yes (Hospitalization)
  Sender: FDA-Public Use
  Company Number: FR-BIOGENIDEC-2013BI057022

PATIENT
  Age: 36 Year
  Sex: Female

DRUGS (2)
  1. TYSABRI [Suspect]
     Indication: MULTIPLE SCLEROSIS
     Route: 042
     Dates: start: 20110920, end: 20130225
  2. GYLENIA [Concomitant]
     Indication: MULTIPLE SCLEROSIS
     Dates: start: 201309, end: 20131012

REACTIONS (1)
  - Multiple sclerosis relapse [Recovered/Resolved with Sequelae]
